FAERS Safety Report 6679475-3 (Version None)
Quarter: 2010Q2

REPORT INFORMATION
  Report Type: 
  Country: None (occurrence: None)
  Receive Date: 20100413
  Receipt Date: 20100330
  Transmission Date: 20101027
  Serious: Yes (Other)
  Sender: FDA-Public Use
  Company Number: PHHY2010US20541

PATIENT
  Sex: Female

DRUGS (11)
  1. RECLAST [Suspect]
     Indication: OSTEOPOROSIS
     Dosage: 5 MG, YEARLY
     Route: 042
     Dates: start: 20081016
  2. FOLIC ACID [Concomitant]
  3. DIGOXIN [Concomitant]
  4. KLONOPIN [Concomitant]
  5. HYDROCODONE BITARTRATE [Concomitant]
  6. PRILOSEC [Concomitant]
  7. SENNA [Concomitant]
  8. LIDODERM [Concomitant]
  9. PROCTOSOLL [Concomitant]
  10. VITAMIN D [Concomitant]
  11. CALCIUM [Concomitant]

REACTIONS (1)
  - HERPES ZOSTER [None]
